FAERS Safety Report 4918706-4 (Version None)
Quarter: 2006Q1

REPORT INFORMATION
  Report Type: 
  Country: None (occurrence: None)
  Receive Date: 20060216
  Receipt Date: 20060202
  Transmission Date: 20060701
  Serious: Yes (Hospitalization)
  Sender: FDA-Public Use
  Company Number: CERZ-11122

PATIENT
  Age: 65 Year
  Sex: Male
  Weight: 104.6 kg

DRUGS (2)
  1. CEREZYME [Suspect]
     Indication: GAUCHER'S DISEASE
     Dosage: 60 U/KG Q4WKS IV
     Route: 042
     Dates: start: 20051121, end: 20060124
  2. CEREZYME [Suspect]
     Indication: GAUCHER'S DISEASE
     Dosage: 3000 UNITS Q2WKS IV
     Route: 042
     Dates: start: 19990409, end: 20051101

REACTIONS (2)
  - CARDIAC FAILURE CONGESTIVE [None]
  - CONDITION AGGRAVATED [None]
